FAERS Safety Report 6062115-4 (Version None)
Quarter: 2009Q1

REPORT INFORMATION
  Report Type: 
  Country: None (occurrence: None)
  Receive Date: 20090203
  Receipt Date: 20090128
  Transmission Date: 20090719
  Serious: Yes (Hospitalization)
  Sender: FDA-Public Use
  Company Number: JP-SP-2008-04020

PATIENT
  Age: 63 Year
  Sex: Male

DRUGS (4)
  1. IMMUCYST [Suspect]
     Indication: BLADDER CANCER RECURRENT
     Route: 043
     Dates: start: 20081017, end: 20081205
  2. IMMUCYST [Suspect]
     Route: 043
     Dates: start: 20081017, end: 20081205
  3. LAC-B (BIFIDOBACTERIUM BIFIDUM) [Concomitant]
     Indication: ANTIDIARRHOEAL SUPPORTIVE CARE
     Dosage: THEN 4.5G
     Dates: start: 20081031, end: 20081210
  4. ALBUMIN TANNATE [Concomitant]
     Dates: start: 20081114, end: 20081210

REACTIONS (9)
  - ARTHRALGIA [None]
  - ARTHRITIS [None]
  - BACK PAIN [None]
  - DIARRHOEA [None]
  - DYSKINESIA [None]
  - DYSSTASIA [None]
  - INCORRECT DOSE ADMINISTERED [None]
  - MUSCULOSKELETAL PAIN [None]
  - PAIN IN EXTREMITY [None]
